FAERS Safety Report 4803089-0 (Version None)
Quarter: 2005Q4

REPORT INFORMATION
  Report Type: 
  Country: None (occurrence: None)
  Receive Date: 20051017
  Receipt Date: 20051017
  Transmission Date: 20060501
  Serious: Yes (Hospitalization)
  Sender: FDA-Public Use
  Company Number: None

PATIENT
  Age: 63 Year
  Sex: Male

DRUGS (13)
  1. CARBOPLATIN [Suspect]
     Dosage: 75MG IV ONCE 6/23
     Route: 042
     Dates: start: 20050623
  2. PACLITAXEL [Suspect]
     Dosage: 90MG IV X 3 DOSES 6/23,29,+7/15
     Route: 042
  3. ATENOLOL [Concomitant]
  4. CLONAZEPAM [Concomitant]
  5. FERROUS SULFATE TAB [Concomitant]
  6. FOSINOPRIL SODIUM [Concomitant]
  7. FUROSEMIDE [Concomitant]
  8. GEMFIBROZIL [Concomitant]
  9. HYDRALAZINE HCL [Concomitant]
  10. IRBESARTAN [Concomitant]
  11. LORATADINE [Concomitant]
  12. METOCLOPRAMIDE HCL [Concomitant]
  13. OMEPRAZOLE [Concomitant]

REACTIONS (1)
  - PANCYTOPENIA [None]
